FAERS Safety Report 8116346-X (Version None)
Quarter: 2012Q1

REPORT INFORMATION
  Report Type: 
  Country: None (occurrence: None)
  Receive Date: 20120206
  Receipt Date: 20120204
  Transmission Date: 20120608
  Serious: Yes (Hospitalization)
  Sender: FDA-Public Use
  Company Number: US-GLAXOSMITHKLINE-A0964633A

PATIENT
  Age: 50 Year
  Sex: Female

DRUGS (3)
  1. FUROSEMIDE [Concomitant]
     Dosage: 40MG UNKNOWN
  2. WARFARIN SODIUM [Concomitant]
     Dosage: 7.5MG UNKNOWN
  3. FLOLAN [Suspect]
     Indication: PULMONARY ARTERIAL HYPERTENSION
     Dosage: 22NGKM SEE DOSAGE TEXT
     Route: 042
     Dates: start: 20111028

REACTIONS (1)
  - ANAEMIA [None]
